FAERS Safety Report 20348124 (Version 2)
Quarter: 2022Q1

REPORT INFORMATION
  Report Type: Spontaneous
  Country: US (occurrence: US)
  Receive Date: 20220118
  Receipt Date: 20220128
  Transmission Date: 20220423
  Serious: Yes (Other)
  Sender: FDA-Public Use
  Company Number: US-CELLTRION INC.-2022US000419

PATIENT

DRUGS (4)
  1. TRUXIMA [Suspect]
     Active Substance: RITUXIMAB-ABBS
     Indication: Mantle cell lymphoma
     Dosage: DOSING REGIMEN UNKNOWN
     Route: 042
     Dates: start: 20210705
  2. TRUXIMA [Suspect]
     Active Substance: RITUXIMAB-ABBS
     Dosage: DOSING REGIMEN UNKNOWN
     Route: 042
     Dates: start: 20210830
  3. TRUXIMA [Suspect]
     Active Substance: RITUXIMAB-ABBS
     Dosage: 740 MG NO FREQUENCY WAS LISTED
     Route: 042
     Dates: start: 20211025
  4. TRUXIMA [Suspect]
     Active Substance: RITUXIMAB-ABBS
     Dosage: DOSING REGIMEN UNKNOWN
     Route: 042
     Dates: start: 20211220

REACTIONS (2)
  - Mantle cell lymphoma [Unknown]
  - Off label use [Unknown]
